FAERS Safety Report 9392959 (Version 2)
Quarter: 2013Q3

REPORT INFORMATION
  Report Type: Spontaneous
  Country: DE (occurrence: DE)
  Receive Date: 20130710
  Receipt Date: 20130816
  Transmission Date: 20140515
  Serious: Yes (Life-Threatening)
  Sender: FDA-Public Use
  Company Number: PHHY2013DE046776

PATIENT
  Age: 66 Year
  Sex: Female

DRUGS (3)
  1. FORADIL [Suspect]
     Indication: CHRONIC OBSTRUCTIVE PULMONARY DISEASE
     Dosage: UNK
     Dates: start: 20130427, end: 20130502
  2. SPIRIVA [Concomitant]
     Dosage: 18 UG/DAY
  3. SALBUHEXAL [Concomitant]
     Dosage: 100 MG/DAY

REACTIONS (4)
  - Feeling abnormal [Unknown]
  - Muscle spasms [Recovered/Resolved]
  - Dyspnoea [Recovering/Resolving]
  - General physical health deterioration [Unknown]
